FAERS Safety Report 7282314-3 (Version None)
Quarter: 2010Q4

REPORT INFORMATION
  Report Type: 
  Country: None (occurrence: None)
  Receive Date: 20101221
  Receipt Date: 20101001
  Transmission Date: 20110411
  Serious: Yes (Hospitalization)
  Sender: FDA-Public Use
  Company Number: WAES 1010USA00132

PATIENT
  Age: 76 Year
  Sex: Male

DRUGS (8)
  1. JANUVIA [Suspect]
     Indication: TYPE 2 DIABETES MELLITUS
     Dosage: 100 MG/DAILY/PO
     Route: 048
  2. AVODART [Concomitant]
  3. FLOMAX [Concomitant]
  4. VERAPAMIL EXTENDED-RELEASE [Concomitant]
  5. ENALAPRIL MALEATE [Concomitant]
  6. GEMFIBROZIL [Concomitant]
  7. LOVASTATIN [Concomitant]
  8. METOLAZONE [Concomitant]

REACTIONS (1)
  - PANCREATITIS ACUTE [None]
